FAERS Safety Report 16685332 (Version 1)
Quarter: 2019Q3

REPORT INFORMATION
  Report Type: Report from Study
  Country: None (occurrence: GB)
  Receive Date: 20190809
  Receipt Date: 20190809
  Transmission Date: 20191004
  Serious: Yes (Hospitalization)
  Sender: FDA-Public Use
  Company Number: GB-ABBVIE-19K-167-2842753-00

PATIENT
  Age: 50 Year
  Sex: Female
  Weight: 104 kg

DRUGS (1)
  1. HUMIRA [Suspect]
     Active Substance: ADALIMUMAB
     Indication: PSORIATIC ARTHROPATHY
     Route: 058
     Dates: start: 20140602, end: 20190603

REACTIONS (5)
  - Pain in extremity [Unknown]
  - Postoperative wound infection [Recovering/Resolving]
  - Bone disorder [Recovering/Resolving]
  - Joint dislocation [Recovering/Resolving]
  - Arthrodesis [Recovering/Resolving]

NARRATIVE: CASE EVENT DATE: 201907
